FAERS Safety Report 5510444-2 (Version None)
Quarter: 2007Q4

REPORT INFORMATION
  Report Type: 
  Country: None (occurrence: None)
  Receive Date: 20071108
  Receipt Date: 20071102
  Transmission Date: 20080405
  Serious: No
  Sender: FDA-Public Use
  Company Number: US-ELI_LILLY_AND_COMPANY-US200711000624

PATIENT
  Sex: Male

DRUGS (13)
  1. CYMBALTA [Suspect]
     Indication: NEURALGIA
     Dosage: 60 MG, 2/D
     Route: 048
     Dates: start: 20070501
  2. CYMBALTA [Suspect]
     Dosage: 60 MG, DAILY (1/D)
     Route: 048
  3. GLIPIZIDE [Concomitant]
  4. INSULIN [Concomitant]
  5. RAMELTEON [Concomitant]
  6. ARIPIPRAZOLE [Concomitant]
  7. MIDRIN [Concomitant]
  8. GABAPENTIN [Concomitant]
  9. VITAMIN B-12 [Concomitant]
  10. MORPHINE [Concomitant]
  11. METHADONE HCL [Concomitant]
  12. LIDOCAINE                          /00033401/ [Concomitant]
  13. SIMVASTATIN [Concomitant]

REACTIONS (2)
  - ALANINE AMINOTRANSFERASE INCREASED [None]
  - ASPARTATE AMINOTRANSFERASE INCREASED [None]
